FAERS Safety Report 10098577 (Version 1)
Quarter: 2014Q2

REPORT INFORMATION
  Report Type: Spontaneous
  Country: CN (occurrence: None)
  Receive Date: 20140421
  Receipt Date: 20140421
  Transmission Date: 20141212
  Serious: Yes (Other)
  Sender: FDA-Public Use
  Company Number: 7282961

PATIENT
  Sex: Female

DRUGS (1)
  1. EUTHYROX (LEVOTHYROXINE SODIUM) (LEVOTHYROXINE SODIUM) [Suspect]
     Indication: THYROID CANCER
     Route: 048
     Dates: start: 199206, end: 201304

REACTIONS (2)
  - Abortion [None]
  - Maternal exposure during pregnancy [None]
